FAERS Safety Report 5634220-5 (Version None)
Quarter: 2008Q1

REPORT INFORMATION
  Report Type: 
  Country: None (occurrence: None)
  Receive Date: 20080221
  Receipt Date: 20080221
  Transmission Date: 20080703
  Serious: No
  Sender: FDA-Public Use
  Company Number: None

PATIENT
  Sex: Male

DRUGS (2)
  1. SYMAX DUOTABS (PRESCRIBED) [Suspect]
     Indication: IRRITABLE BOWEL SYNDROME
     Dosage: 1 TAB Q12H PO NOT TAKEN
     Route: 048
  2. SYMBYAX [Suspect]
     Dosage: 6/25 QHS PO NOT TAKEN
     Route: 048

REACTIONS (2)
  - DRUG DISPENSING ERROR [None]
  - MEDICATION ERROR [None]
